FAERS Safety Report 4718406-X (Version None)
Quarter: 2005Q3

REPORT INFORMATION
  Report Type: 
  Country: None (occurrence: None)
  Receive Date: 20050720
  Receipt Date: 20050508
  Transmission Date: 20060218
  Serious: Yes (Other)
  Sender: FDA-Public Use
  Company Number: 2005AP02715

PATIENT
  Age: 78 Month
  Sex: Male

DRUGS (2)
  1. LOSEC [Suspect]
     Indication: GASTRIC ULCER
     Route: 042
     Dates: start: 20050315, end: 20050101
  2. LOSEC [Suspect]
     Route: 048
     Dates: end: 20050322

REACTIONS (1)
  - BLOOD GASTRIN INCREASED [None]
